FAERS Safety Report 21908792 (Version 2)
Quarter: 2023Q1

REPORT INFORMATION
  Report Type: Spontaneous
  Country: JP (occurrence: JP)
  Receive Date: 20230125
  Receipt Date: 20230227
  Transmission Date: 20230418
  Serious: Yes (Hospitalization)
  Sender: FDA-Public Use
  Company Number: JP-CHEMOCENTRYX, INC.-2023JPCCXI0656

PATIENT

DRUGS (2)
  1. TAVNEOS [Suspect]
     Active Substance: AVACOPAN
     Indication: Granulomatosis with polyangiitis
     Dosage: 60 MG (DAILY)
     Route: 048
     Dates: start: 20221213, end: 20221227
  2. PREDNONINE (Prednisolone) [Concomitant]
     Indication: Granulomatosis with polyangiitis
     Dosage: 5 MG
     Route: 065

REACTIONS (1)
  - Cerebral infarction [Recovering/Resolving]

NARRATIVE: CASE EVENT DATE: 20221227
